FAERS Safety Report 10010991 (Version 1)
Quarter: 2014Q1

REPORT INFORMATION
  Report Type: Spontaneous
  Country: US (occurrence: None)
  Receive Date: 20140304
  Receipt Date: 20140304
  Transmission Date: 20141002
  Serious: Yes (Other)
  Sender: FDA-Public Use
  Company Number: RB-5293-2008

PATIENT
  Age: 44 Year
  Sex: Male

DRUGS (5)
  1. SUBOXONE [Suspect]
     Indication: DRUG DEPENDENCE
     Route: 060
     Dates: start: 20081018
  2. KEPPRA [Concomitant]
  3. SIMVASTATIN [Concomitant]
  4. TRAZODONE [Concomitant]
  5. ASPIRIN [Concomitant]

REACTIONS (7)
  - Headache [None]
  - Insomnia [None]
  - Nausea [None]
  - Condition aggravated [None]
  - Paraesthesia [None]
  - Night sweats [None]
  - Myocardial infarction [None]
